FAERS Safety Report 7486482-X (Version None)
Quarter: 2011Q2

REPORT INFORMATION
  Report Type: 
  Country: None (occurrence: None)
  Receive Date: 20110517
  Receipt Date: 20110506
  Transmission Date: 20111010
  Serious: Yes (Death, Hospitalization)
  Sender: FDA-Public Use
  Company Number: PT-BAXTER-2011BH011927

PATIENT
  Sex: Female

DRUGS (8)
  1. EXTRANEAL [Suspect]
     Route: 033
     Dates: end: 20110414
  2. EXTRANEAL [Suspect]
     Indication: PERITONEAL DIALYSIS
     Route: 033
     Dates: start: 20110414, end: 20110417
  3. PHYSIOSOL IN PLASTIC CONTAINER [Suspect]
     Route: 033
     Dates: end: 20110414
  4. EXTRANEAL [Suspect]
     Route: 033
     Dates: start: 20110414, end: 20110417
  5. EXTRANEAL [Suspect]
     Route: 033
     Dates: end: 20110414
  6. PHYSIOSOL IN PLASTIC CONTAINER [Suspect]
     Indication: PERITONEAL DIALYSIS
     Route: 033
     Dates: start: 20110414, end: 20110417
  7. PHYSIOSOL IN PLASTIC CONTAINER [Suspect]
     Route: 033
     Dates: end: 20110414
  8. PHYSIOSOL IN PLASTIC CONTAINER [Suspect]
     Route: 033
     Dates: start: 20110414, end: 20110417

REACTIONS (3)
  - GENERAL PHYSICAL HEALTH DETERIORATION [None]
  - RENAL FAILURE CHRONIC [None]
  - DEPRESSED LEVEL OF CONSCIOUSNESS [None]
